FAERS Safety Report 20605303 (Version 6)
Quarter: 2022Q4

REPORT INFORMATION
  Report Type: Report from Study
  Country: US (occurrence: US)
  Receive Date: 20220317
  Receipt Date: 20221025
  Transmission Date: 20230113
  Serious: Yes (Other)
  Sender: FDA-Public Use
  Company Number: US-ABBVIE-21K-163-3993898-00

PATIENT
  Age: 67 Year
  Sex: Female
  Weight: 48.53 kg

DRUGS (6)
  1. HUMIRA [Suspect]
     Active Substance: ADALIMUMAB
     Indication: Crohn^s disease
     Dosage: CITRATE FREE
     Route: 058
     Dates: start: 201903
  2. HUMIRA [Suspect]
     Active Substance: ADALIMUMAB
     Indication: Rheumatoid arthritis
     Dosage: CITRATE FREE
     Route: 058
  3. HUMIRA [Suspect]
     Active Substance: ADALIMUMAB
     Dosage: CITRATE FREE
     Route: 058
  4. PFIZER-BIONTECH COVID-19 VACCINE [Concomitant]
     Active Substance: TOZINAMERAN
     Indication: COVID-19 immunisation
     Dosage: TIME INTERVAL: 1 TOTAL: 1ST DOSE, ONE IN ONCE
     Route: 030
     Dates: start: 20210309, end: 20210309
  5. PFIZER-BIONTECH COVID-19 VACCINE [Concomitant]
     Active Substance: TOZINAMERAN
     Indication: COVID-19 immunisation
     Dosage: TIME INTERVAL: 1 TOTAL: 2ND DOSE, ONE IN ONCE
     Route: 030
     Dates: start: 20210406, end: 20210406
  6. PFIZER-BIONTECH COVID-19 VACCINE [Concomitant]
     Active Substance: TOZINAMERAN
     Indication: COVID-19 immunisation
     Dosage: TIME INTERVAL: 1 TOTAL: 3RD DOSE, ONE IN ONCE
     Route: 030
     Dates: start: 20210831, end: 20210831

REACTIONS (21)
  - Knee arthroplasty [Recovered/Resolved]
  - Osteoarthritis [Unknown]
  - Swelling [Unknown]
  - Rheumatoid arthritis [Unknown]
  - Post procedural swelling [Unknown]
  - Fatigue [Unknown]
  - Gait disturbance [Unknown]
  - Arthroscopic surgery [Unknown]
  - Joint injury [Unknown]
  - Insomnia [Unknown]
  - Diplopia [Unknown]
  - Peripheral swelling [Unknown]
  - Urticaria [Unknown]
  - Pain [Unknown]
  - Therapeutic product effect decreased [Unknown]
  - Peripheral swelling [Unknown]
  - Pyrexia [Recovered/Resolved]
  - Tooth infection [Recovered/Resolved]
  - Tooth fracture [Unknown]
  - Tooth extraction [Unknown]
  - Malaise [Unknown]

NARRATIVE: CASE EVENT DATE: 20191201
